FAERS Safety Report 8465558-4 (Version None)
Quarter: 2012Q2

REPORT INFORMATION
  Report Type: 
  Country: None (occurrence: None)
  Receive Date: 20120626
  Receipt Date: 20120618
  Transmission Date: 20120825
  Serious: Yes (Hospitalization)
  Sender: FDA-Public Use
  Company Number: US-UCBSA-026331

PATIENT
  Age: 26 Year
  Sex: Male
  Weight: 46.26 kg

DRUGS (8)
  1. PREDNISONE [Concomitant]
     Dates: start: 20020701, end: 20020901
  2. PREDNISONE [Concomitant]
     Dates: start: 20020901, end: 20040401
  3. LOPERAMIDE [Concomitant]
     Dosage: AS NEEDED
  4. CIMZIA [Suspect]
     Indication: CROHN'S DISEASE
     Route: 058
     Dates: start: 20100122
  5. PREDNISONE [Concomitant]
     Dates: start: 20090601, end: 20090811
  6. PREDNISONE [Concomitant]
     Dates: start: 20100420, end: 20110715
  7. IBUPROFEN [Concomitant]
  8. LOPERAMIDE [Concomitant]
     Dates: start: 20101208, end: 20101211

REACTIONS (1)
  - CELLULITIS [None]
